FAERS Safety Report 19437520 (Version 1)
Quarter: 2021Q2

REPORT INFORMATION
  Report Type: Spontaneous
  Country: US (occurrence: US)
  Receive Date: 20210618
  Receipt Date: 20210618
  Transmission Date: 20210717
  Serious: No
  Sender: FDA-Public Use
  Company Number: US-BIOHAVEN PHARMACEUTICALS-2021BHV00700

PATIENT
  Age: 73 Year
  Sex: Female
  Weight: 72.56 kg

DRUGS (3)
  1. IMITREX [Concomitant]
     Active Substance: SUMATRIPTAN SUCCINATE
  2. NURTEC ODT [Suspect]
     Active Substance: RIMEGEPANT SULFATE
     Indication: MIGRAINE
     Dosage: 75 MG 1X/DAY, AS NEEDED
     Route: 060
     Dates: start: 202105
  3. FROVATRIPTAN. [Concomitant]
     Active Substance: FROVATRIPTAN

REACTIONS (2)
  - Therapeutic response shortened [Unknown]
  - Migraine [Unknown]

NARRATIVE: CASE EVENT DATE: 20210526
